FAERS Safety Report 16863531 (Version 2)
Quarter: 2019Q4

REPORT INFORMATION
  Report Type: Report from Study
  Country: US (occurrence: US)
  Receive Date: 20190927
  Receipt Date: 20191023
  Transmission Date: 20200122
  Serious: Yes (Hospitalization, Other)
  Sender: FDA-Public Use
  Company Number: US-GILEAD-2019-0427133

PATIENT
  Age: 21 Year
  Sex: Female

DRUGS (2)
  1. AZTREONAM LYSINE [Suspect]
     Active Substance: AZTREONAM LYSINE
     Dosage: 75 MG, TID 28 DAYS ON 28 DAYS OFF
     Route: 055
     Dates: start: 20150522
  2. AZTREONAM LYSINE [Suspect]
     Active Substance: AZTREONAM LYSINE
     Indication: CYSTIC FIBROSIS
     Dosage: 75 MG, TID 28 DAYS ON 28 DAYS OFF
     Route: 055
     Dates: start: 20150522

REACTIONS (2)
  - Lung disorder [Not Recovered/Not Resolved]
  - Lung transplant [Unknown]
